FAERS Safety Report 8653032 (Version 2)
Quarter: 2012Q4

REPORT INFORMATION
  Report Type: 
  Country: AU (occurrence: AU)
  Receive Date: 20120706
  Receipt Date: 20120905
  Transmission Date: 20130627
  Serious: Yes (Hospitalization, Disabling)
  Sender: FDA-Public Use
  Company Number: PHHY2012AU057584

PATIENT
  Age: 46 Year
  Sex: Female

DRUGS (6)
  1. CLOZARIL [Suspect]
     Dosage: 400 mg
     Dates: start: 20010214
  2. DEPO-RALOVERA [Concomitant]
     Dosage: 150 mg/ml (every 3 momnths)
     Route: 030
  3. ESCITALOPRAM [Concomitant]
     Dosage: 20 mg
     Route: 048
  4. LAMOTRIGINE [Concomitant]
     Dosage: 200 mg, UNK
     Route: 048
  5. THYROXINE SODIUM [Concomitant]
     Dosage: 50 ug, UNK
     Route: 048
  6. VITAMIN D3 [Concomitant]
     Dosage: 25 ug, UNK

REACTIONS (1)
  - Gastrointestinal disorder [Recovering/Resolving]
